FAERS Safety Report 8197150-3 (Version None)
Quarter: 2012Q1

REPORT INFORMATION
  Report Type: 
  Country: None (occurrence: None)
  Receive Date: 20120309
  Receipt Date: 20120227
  Transmission Date: 20120608
  Serious: Yes (Other)
  Sender: FDA-Public Use
  Company Number: US-SANOFI-AVENTIS-2012SA008649

PATIENT
  Age: 81 Year
  Sex: Male
  Weight: 88 kg

DRUGS (8)
  1. PLAVIX [Suspect]
     Route: 048
     Dates: start: 20111229, end: 20120207
  2. ASPIRIN [Concomitant]
     Dates: start: 20100901
  3. FISH OIL [Concomitant]
     Dates: start: 20111230, end: 20120207
  4. PLAVIX [Suspect]
     Route: 048
     Dates: start: 20120209
  5. ZETIA [Concomitant]
     Dates: start: 20111230
  6. ASPIRIN [Concomitant]
     Dates: start: 20100901
  7. PLAVIX [Suspect]
     Indication: PROPHYLAXIS
     Route: 048
     Dates: start: 20100901, end: 20110901
  8. LISINOPRIL [Concomitant]

REACTIONS (8)
  - OEDEMA PERIPHERAL [None]
  - ERYTHEMA [None]
  - HAEMATOLOGICAL MALIGNANCY [None]
  - LIMB INJURY [None]
  - MUSCLE TIGHTNESS [None]
  - PAIN [None]
  - CONTUSION [None]
  - DRUG ERUPTION [None]
